FAERS Safety Report 21245544 (Version 1)
Quarter: 2022Q3

REPORT INFORMATION
  Report Type: Spontaneous
  Country: CN (occurrence: CN)
  Receive Date: 20220824
  Receipt Date: 20220824
  Transmission Date: 20221026
  Serious: Yes (Life-Threatening, Other)
  Sender: FDA-Public Use
  Company Number: CN-Accord-274305

PATIENT
  Age: 56 Year
  Sex: Male
  Weight: 46 kg

DRUGS (9)
  1. CISPLATIN [Suspect]
     Active Substance: CISPLATIN
     Indication: Sarcomatoid carcinoma of the lung
     Dosage: 20 MG, D1-3
     Dates: start: 202009
  2. PACLITAXEL [Suspect]
     Active Substance: PACLITAXEL
     Indication: Sarcomatoid carcinoma of the lung
     Dosage: 150 MG, D1/D8
     Dates: start: 202009
  3. TISLELIZUMAB [Suspect]
     Active Substance: TISLELIZUMAB
     Indication: Sarcomatoid carcinoma of the lung
     Dosage: 200 MG
     Dates: start: 20200929
  4. CATEQUENTINIB [Suspect]
     Active Substance: CATEQUENTINIB
     Indication: Sarcomatoid carcinoma of the lung
     Dosage: 12 MG QD
     Route: 048
  5. PACLITAXEL [Suspect]
     Active Substance: PACLITAXEL
     Indication: Sarcomatoid carcinoma of the lung
     Dosage: 150 MG, D1
     Dates: start: 20201023
  6. CISPLATIN [Suspect]
     Active Substance: CISPLATIN
     Indication: Sarcomatoid carcinoma of the lung
     Dosage: 20 MG, D1-3
     Dates: start: 20201023
  7. CATEQUENTINIB [Suspect]
     Active Substance: CATEQUENTINIB
     Indication: Sarcomatoid carcinoma of the lung
     Dates: start: 20201023
  8. CATEQUENTINIB [Suspect]
     Active Substance: CATEQUENTINIB
     Indication: Sarcomatoid carcinoma of the lung
     Dates: start: 20201124
  9. TISLELIZUMAB [Suspect]
     Active Substance: TISLELIZUMAB
     Indication: Sarcomatoid carcinoma of the lung
     Dates: start: 20201124

REACTIONS (2)
  - Myelosuppression [Recovered/Resolved]
  - Liver injury [Recovered/Resolved]

NARRATIVE: CASE EVENT DATE: 20200901
